FAERS Safety Report 5150044-X (Version None)
Quarter: 2006Q4

REPORT INFORMATION
  Report Type: 
  Country: None (occurrence: None)
  Receive Date: 20061113
  Receipt Date: 20061102
  Transmission Date: 20070319
  Serious: Yes (Hospitalization)
  Sender: FDA-Public Use
  Company Number: GB-MERCK-0611USA02311

PATIENT
  Age: 48 Year
  Sex: Female

DRUGS (1)
  1. PRINIVIL [Suspect]
     Indication: PROTEINURIA
     Route: 065

REACTIONS (4)
  - ASCITES [None]
  - DIARRHOEA [None]
  - SMALL BOWEL ANGIOEDEMA [None]
  - VOMITING [None]
